FAERS Safety Report 4875413-4 (Version None)
Quarter: 2006Q1

REPORT INFORMATION
  Report Type: 
  Country: None (occurrence: None)
  Receive Date: 20060105
  Receipt Date: 20051222
  Transmission Date: 20060701
  Serious: Yes (Other)
  Sender: FDA-Public Use
  Company Number: 2005158937

PATIENT
  Age: 81 Year
  Sex: Male
  Weight: 90.7194 kg

DRUGS (9)
  1. XALATAN [Suspect]
     Indication: OPEN ANGLE GLAUCOMA
     Dosage: 3 MCG (1.5 MCG, 1 IN 1 D), OPHTHALMIC
     Route: 047
     Dates: start: 19991206
  2. HUMULIN (INSULIN HUMAN, INSULIN ISOPHANE, HUMAN BIOSYNTHETIC) [Concomitant]
  3. CADUET [Concomitant]
  4. CLONIDINE [Concomitant]
  5. LIPITOR [Concomitant]
  6. CARDIZEM [Concomitant]
  7. ASPIRIN [Concomitant]
  8. TIMOLOL MALEATE [Concomitant]
  9. INSULIN [Concomitant]

REACTIONS (2)
  - CATARACT CORTICAL [None]
  - DISEASE PROGRESSION [None]
